FAERS Safety Report 20333384 (Version 1)
Quarter: 2022Q1

REPORT INFORMATION
  Report Type: Spontaneous
  Country: RU (occurrence: None)
  Receive Date: 20220113
  Receipt Date: 20220113
  Transmission Date: 20220423
  Serious: Yes (Hospitalization)
  Sender: FDA-Public Use
  Company Number: RU-Merck Healthcare KGaA-9271588

PATIENT
  Age: 1 Year
  Sex: Male

DRUGS (1)
  1. EUTHYROX [Suspect]
     Active Substance: LEVOTHYROXINE SODIUM
     Indication: Accidental exposure to product by child
     Route: 048
     Dates: start: 20210311, end: 20210311

REACTIONS (4)
  - Anxiety [Unknown]
  - Malaise [Unknown]
  - Asthenia [Unknown]
  - Pallor [Unknown]

NARRATIVE: CASE EVENT DATE: 20210311
